FAERS Safety Report 23961933 (Version 3)
Quarter: 2024Q3

REPORT INFORMATION
  Report Type: Report from Study
  Country: CA (occurrence: CA)
  Receive Date: 20240611
  Receipt Date: 20240713
  Transmission Date: 20241017
  Serious: Yes (Hospitalization, Other)
  Sender: JOHNSON AND JOHNSON
  Company Number: CA-JNJFOC-20230868152

PATIENT
  Age: 72 Year
  Sex: Male

DRUGS (3)
  1. APALUTAMIDE [Suspect]
     Active Substance: APALUTAMIDE
     Indication: Hormone-dependent prostate cancer
     Route: 048
     Dates: start: 20200105, end: 202305
  2. APALUTAMIDE [Suspect]
     Active Substance: APALUTAMIDE
     Route: 048
     Dates: start: 20200115, end: 202305
  3. APALUTAMIDE [Suspect]
     Active Substance: APALUTAMIDE
     Route: 048
     Dates: start: 20201010, end: 20240709

REACTIONS (10)
  - Hospitalisation [Unknown]
  - Prostate cancer metastatic [Unknown]
  - Pneumonia [Unknown]
  - Mobility decreased [Unknown]
  - Palliative care [Not Recovered/Not Resolved]
  - Asthenia [Not Recovered/Not Resolved]
  - Confusional state [Not Recovered/Not Resolved]
  - Fall [Not Recovered/Not Resolved]
  - Off label use [Unknown]
  - Abdominal distension [Unknown]

NARRATIVE: CASE EVENT DATE: 20240604
